FAERS Safety Report 6744587-2 (Version None)
Quarter: 2010Q2

REPORT INFORMATION
  Report Type: 
  Country: None (occurrence: None)
  Receive Date: 20100527
  Receipt Date: 20100520
  Transmission Date: 20101027
  Serious: Yes (Hospitalization)
  Sender: FDA-Public Use
  Company Number: PHHO2010FR07816

PATIENT
  Sex: Female
  Weight: 58.7 kg

DRUGS (4)
  1. CERTICAN [Suspect]
     Indication: RENAL TRANSPLANT
     Dosage: 3.5 MG / DAY
     Route: 048
     Dates: start: 20100414
  2. BACTRIM [Concomitant]
  3. ROVALCYTE [Concomitant]
  4. NEXIUM [Concomitant]

REACTIONS (1)
  - AGRANULOCYTOSIS [None]
